FAERS Safety Report 25907749 (Version 1)
Quarter: 2025Q4

REPORT INFORMATION
  Report Type: Spontaneous
  Country: US (occurrence: US)
  Receive Date: 20251010
  Receipt Date: 20251010
  Transmission Date: 20260118
  Serious: Yes (Hospitalization)
  Sender: Kenvue
  Company Number: US-KENVUE-20251001324

PATIENT
  Age: 58 Year
  Sex: Male

DRUGS (1)
  1. NEOSPORIN [Suspect]
     Active Substance: BACITRACIN ZINC\NEOMYCIN SULFATE\POLYMYXIN B SULFATE
     Indication: Scratch
     Dosage: (JUST ENOUGH TO COVER THE SCRATCH), AS NEEDED
     Route: 061
     Dates: start: 2025, end: 202509

REACTIONS (1)
  - Drug hypersensitivity [Recovering/Resolving]

NARRATIVE: CASE EVENT DATE: 20250831
